FAERS Safety Report 18451604 (Version 2)
Quarter: 2022Q1

REPORT INFORMATION
  Report Type: Spontaneous
  Country: US (occurrence: US)
  Receive Date: 20201102
  Receipt Date: 20220225
  Transmission Date: 20220424
  Serious: No
  Sender: FDA-Public Use
  Company Number: US-009507513-2010USA010787

PATIENT
  Sex: Male

DRUGS (2)
  1. TEMODAR [Suspect]
     Active Substance: TEMOZOLOMIDE
     Indication: Malignant pituitary tumour
     Dosage: 150 MILLIGRAM/SQ. METER, DIALY (INITIAL DOSE) (5D Q 28D REGIMEN)
     Route: 048
  2. TEMODAR [Suspect]
     Active Substance: TEMOZOLOMIDE
     Dosage: 200 MILLIGRAM/SQ. METER DAILY (5D Q 28D REGIMEN)

REACTIONS (2)
  - Off label use [Unknown]
  - No adverse event [Unknown]
